FAERS Safety Report 5910836-3 (Version None)
Quarter: 2008Q4

REPORT INFORMATION
  Report Type: 
  Country: None (occurrence: None)
  Receive Date: 20081006
  Receipt Date: 20081006
  Transmission Date: 20090506
  Serious: No
  Sender: FDA-Public Use
  Company Number: None

PATIENT
  Sex: Female
  Weight: 83.0083 kg

DRUGS (3)
  1. CYMBALTA [Suspect]
     Indication: DEPRESSION
     Dosage: 60 MG 1  PO
     Route: 048
     Dates: start: 20060901, end: 20070401
  2. CYMBALTA [Suspect]
     Indication: PAIN
     Dosage: 60 MG 1  PO
     Route: 048
     Dates: start: 20060901, end: 20070401
  3. CHANTIX [Suspect]
     Indication: SMOKING CESSATION THERAPY
     Dates: start: 20070301, end: 20070701

REACTIONS (2)
  - ABNORMAL BEHAVIOUR [None]
  - AMNESIA [None]
